FAERS Safety Report 19057320 (Version 1)
Quarter: 2021Q1

REPORT INFORMATION
  Report Type: Spontaneous
  Country: US (occurrence: US)
  Receive Date: 20210324
  Receipt Date: 20210324
  Transmission Date: 20210420
  Serious: No
  Sender: FDA-Public Use
  Company Number: US-BAYER-2021-107087

PATIENT

DRUGS (1)
  1. CLARITIN [Suspect]
     Active Substance: LORATADINE
     Dosage: 1 DF
     Dates: start: 20210316, end: 2021

REACTIONS (4)
  - Rhinorrhoea [Unknown]
  - Therapeutic product effect delayed [Unknown]
  - Sneezing [Unknown]
  - Sinus headache [Unknown]

NARRATIVE: CASE EVENT DATE: 20210316
